FAERS Safety Report 11669864 (Version 2)
Quarter: 2018Q1

REPORT INFORMATION
  Report Type: Spontaneous
  Country: FR (occurrence: FR)
  Receive Date: 20151027
  Receipt Date: 20180308
  Transmission Date: 20180508
  Serious: Yes (Death, Congenital Anomaly, Other)
  Sender: FDA-Public Use
  Company Number: FR-FRI-1000080353

PATIENT
  Sex: Female

DRUGS (5)
  1. RISPERDAL [Suspect]
     Active Substance: RISPERIDONE
     Indication: MATERNAL EXPOSURE TIMING UNSPECIFIED
     Dosage: 1 MG, QD
     Route: 064
  2. MILNACIPRAN - BP [Suspect]
     Active Substance: MILNACIPRAN
     Dosage: 1 DF, QD
     Route: 064
  3. ZOLOFT [Suspect]
     Active Substance: SERTRALINE HYDROCHLORIDE
     Indication: MATERNAL EXPOSURE TIMING UNSPECIFIED
     Dosage: 50 MG, UNK
     Route: 064
  4. ABILIFY [Suspect]
     Active Substance: ARIPIPRAZOLE
     Indication: MATERNAL EXPOSURE TIMING UNSPECIFIED
     Dosage: 1 DF, QD
     Route: 064
  5. MILNACIPRAN - BP [Suspect]
     Active Substance: MILNACIPRAN
     Indication: MATERNAL EXPOSURE TIMING UNSPECIFIED
     Dosage: 3 DF, QD
     Route: 064

REACTIONS (2)
  - Anencephaly [Fatal]
  - Foetal exposure during pregnancy [Unknown]

NARRATIVE: CASE EVENT DATE: 201409
